FAERS Safety Report 12520473 (Version 1)
Quarter: 2016Q2

REPORT INFORMATION
  Report Type: Spontaneous
  Country: US (occurrence: None)
  Receive Date: 20160630
  Receipt Date: 20160630
  Transmission Date: 20160815
  Serious: No
  Sender: FDA-Public Use
  Company Number: None

PATIENT
  Sex: Female

DRUGS (1)
  1. ACZONE [Suspect]
     Active Substance: DAPSONE
     Indication: ACNE
     Dosage: TWICE A DAY  APPLIED TO A SURFACE, USUALLY THE SKIN
     Route: 062

REACTIONS (3)
  - Skin exfoliation [None]
  - Dry skin [None]
  - Application site pain [None]

NARRATIVE: CASE EVENT DATE: 20160626
